FAERS Safety Report 6661339-2 (Version None)
Quarter: 2010Q1

REPORT INFORMATION
  Report Type: 
  Country: None (occurrence: None)
  Receive Date: 20100331
  Receipt Date: 20100322
  Transmission Date: 20100710
  Serious: Yes (Other)
  Sender: FDA-Public Use
  Company Number: PHHY2009CA39326

PATIENT
  Sex: Female

DRUGS (11)
  1. EXJADE [Suspect]
     Indication: NON-HODGKIN'S LYMPHOMA
     Dosage: 875 MG, QD
     Route: 048
     Dates: start: 20090909, end: 20091007
  2. EXJADE [Suspect]
     Indication: IRON OVERLOAD
  3. FOSAMAX [Concomitant]
     Dosage: ONCE A WEEK
  4. PREDNISONE [Concomitant]
     Dosage: 10 MG, QD
  5. PLAQUENIL [Concomitant]
  6. LIPITOR [Concomitant]
     Dosage: 10 MG, QD
  7. TENORETIC 100 [Concomitant]
  8. VITAMIN D [Concomitant]
  9. CALCIUM [Concomitant]
  10. MULTI-VITAMIN [Concomitant]
  11. COVERSYL [Concomitant]

REACTIONS (10)
  - ASPARTATE AMINOTRANSFERASE INCREASED [None]
  - BLOOD ALKALINE PHOSPHATASE INCREASED [None]
  - DIARRHOEA [None]
  - FAECES DISCOLOURED [None]
  - FATIGUE [None]
  - HEPATIC ENZYME INCREASED [None]
  - NAUSEA [None]
  - PYREXIA [None]
  - URINE COLOUR ABNORMAL [None]
  - VOMITING [None]
